FAERS Safety Report 6318417-7 (Version None)
Quarter: 2009Q3

REPORT INFORMATION
  Report Type: 
  Country: None (occurrence: None)
  Receive Date: 20090821
  Receipt Date: 20090813
  Transmission Date: 20100115
  Serious: Yes (Other)
  Sender: FDA-Public Use
  Company Number: US-PFIZER INC-2009254889

PATIENT
  Sex: Male
  Weight: 76.19 kg

DRUGS (1)
  1. CELEBREX [Suspect]
     Indication: ARTHRITIS
     Dates: start: 20010101, end: 20010101

REACTIONS (7)
  - BLOOD CHOLESTEROL INCREASED [None]
  - HERNIA [None]
  - NEPHROLITHIASIS [None]
  - OEDEMA PERIPHERAL [None]
  - PROSTATE CANCER [None]
  - RASH [None]
  - SKIN EXFOLIATION [None]
